FAERS Safety Report 24613626 (Version 2)
Quarter: 2024Q4

REPORT INFORMATION
  Report Type: Spontaneous
  Country: IE (occurrence: IE)
  Receive Date: 20241113
  Receipt Date: 20241202
  Transmission Date: 20250115
  Serious: Yes (Hospitalization, Other)
  Sender: Kenvue
  Company Number: None

PATIENT

DRUGS (10)
  1. LOPERAMIDE [Suspect]
     Active Substance: LOPERAMIDE
     Indication: Colon cancer
     Dosage: 4 MILLIGRAM, FOUR TIME A DAY
     Route: 048
     Dates: start: 20240707, end: 20241014
  2. LOPERAMIDE [Suspect]
     Active Substance: LOPERAMIDE
     Indication: Diarrhoea
  3. OXALIPLATIN [Suspect]
     Active Substance: OXALIPLATIN
     Indication: Colon cancer
     Dosage: 150 MILLIGRAM, QOW
     Route: 042
     Dates: start: 20240802, end: 20240819
  4. TUCATINIB [Suspect]
     Active Substance: TUCATINIB
     Indication: Colorectal cancer metastatic
     Dosage: 250 MILLIGRAM, TWICE A DAY
     Route: 048
     Dates: start: 20240726, end: 20240819
  5. TRASTUZUMAB [Suspect]
     Active Substance: TRASTUZUMAB
     Indication: Colon cancer
     Dosage: 994 MILLIGRAM, Q3W
     Route: 042
     Dates: start: 20240726, end: 20240819
  6. FLUOROURACIL [Suspect]
     Active Substance: FLUOROURACIL
     Indication: Colon cancer
     Dosage: 4200 MILLIGRAM, QOW
     Route: 042
     Dates: start: 20240802, end: 20240819
  7. FLUOROURACIL [Suspect]
     Active Substance: FLUOROURACIL
     Dosage: 738 MILLIGRAM, QOW
     Route: 042
     Dates: start: 20240802, end: 20240819
  8. LEUCOVORIN CALCIUM [Suspect]
     Active Substance: LEUCOVORIN CALCIUM
     Indication: Colon cancer
     Dosage: 922 MILLIGRAM, QOW
     Route: 042
     Dates: start: 20240802, end: 20240819
  9. LOSARTAN [Concomitant]
     Active Substance: LOSARTAN
     Indication: Hypertension
     Dosage: UNK
     Route: 048
     Dates: start: 20240817, end: 20240917
  10. METFORMIN [Concomitant]
     Active Substance: METFORMIN HYDROCHLORIDE
     Indication: Type 2 diabetes mellitus
     Dosage: UNK
     Route: 065
     Dates: start: 20240817, end: 20240917

REACTIONS (5)
  - Confusional state [Recovered/Resolved]
  - Hypovolaemia [Recovered/Resolved]
  - Hyponatraemia [Recovered/Resolved]
  - Acute kidney injury [Recovered/Resolved]
  - Blood creatinine increased [Recovered/Resolved]

NARRATIVE: CASE EVENT DATE: 20240916
